FAERS Safety Report 16649929 (Version 2)
Quarter: 2019Q3

REPORT INFORMATION
  Report Type: Report from Study
  Country: None (occurrence: US)
  Receive Date: 20190731
  Receipt Date: 20190826
  Transmission Date: 20191004
  Serious: Yes (Hospitalization)
  Sender: FDA-Public Use
  Company Number: US-ABBVIE-19K-163-2826089-00

PATIENT
  Age: 55 Year
  Sex: Male
  Weight: 104.42 kg

DRUGS (1)
  1. HUMIRA [Suspect]
     Active Substance: ADALIMUMAB
     Indication: CROHN^S DISEASE
     Dosage: STOP DATE: AFTER A COUPLE OF MONTHS
     Route: 058

REACTIONS (12)
  - Blood magnesium decreased [Recovered/Resolved]
  - Anaemia [Recovered/Resolved]
  - Injection site rash [Recovered/Resolved]
  - Bone marrow disorder [Recovered/Resolved]
  - Nephrolithiasis [Recovered/Resolved]
  - Anal fissure haemorrhage [Recovered/Resolved]
  - Blood potassium decreased [Recovered/Resolved]
  - Drug ineffective [Recovered/Resolved]
  - Anal fissure [Recovered/Resolved]
  - Blood calcium decreased [Recovered/Resolved]
  - Gastrointestinal inflammation [Recovered/Resolved]
  - Rash erythematous [Unknown]

NARRATIVE: CASE EVENT DATE: 201512
